APPROVED DRUG PRODUCT: LEVALBUTEROL HYDROCHLORIDE
Active Ingredient: LEVALBUTEROL HYDROCHLORIDE
Strength: EQ 0.021% BASE
Dosage Form/Route: SOLUTION;INHALATION
Application: A218770 | Product #002
Applicant: MANKIND PHARMA LTD
Approved: Oct 21, 2024 | RLD: No | RS: No | Type: DISCN